FAERS Safety Report 7915299-4 (Version None)
Quarter: 2011Q4

REPORT INFORMATION
  Report Type: 
  Country: None (occurrence: None)
  Receive Date: 20111115
  Receipt Date: 20110406
  Transmission Date: 20120403
  Serious: No
  Sender: FDA-Public Use
  Company Number: US-BAYER-2011-070534

PATIENT
  Age: 60 Year
  Sex: Female
  Weight: 91 kg

DRUGS (6)
  1. METFORMIN HCL [Concomitant]
  2. DIOVAN [Concomitant]
  3. CALCIUM [Concomitant]
  4. NEO-SYNEPHRINE EXTRA STRENGTH [Suspect]
     Indication: NASAL CONGESTION
     Dosage: 1 DOSE USED ONLY ONE TIME
     Dates: start: 20110405
  5. BYETTA [Concomitant]
  6. FISH OIL [Concomitant]

REACTIONS (1)
  - NASAL CONGESTION [None]
